FAERS Safety Report 5212179-2 (Version None)
Quarter: 2006Q4

REPORT INFORMATION
  Report Type: 
  Country: None (occurrence: None)
  Receive Date: 20061114
  Receipt Date: 20060724
  Transmission Date: 20070319
  Serious: Yes (Other)
  Sender: FDA-Public Use
  Company Number: S06-USA-02300-01

PATIENT
  Sex: Female

DRUGS (5)
  1. NAMENDA [Suspect]
     Indication: AMNESIA
     Dosage: 5 MG QD PO
     Route: 048
     Dates: start: 20060608, end: 20060610
  2. NAMENDA [Suspect]
     Indication: MENTAL STATUS CHANGES
     Dosage: 5 MG QD PO
     Route: 048
     Dates: start: 20060608, end: 20060610
  3. ARICEPT [Concomitant]
  4. DIOVAN HCT [Concomitant]
  5. CARDIZEM [Concomitant]

REACTIONS (2)
  - HYPERTENSION [None]
  - NAUSEA [None]
